FAERS Safety Report 7583239-6 (Version None)
Quarter: 2011Q2

REPORT INFORMATION
  Report Type: 
  Country: None (occurrence: None)
  Receive Date: 20110630
  Receipt Date: 20110620
  Transmission Date: 20111010
  Serious: Yes (Death, Other)
  Sender: FDA-Public Use
  Company Number: JP-ACTELION-A-CH2011-50784

PATIENT
  Age: 69 Year
  Sex: Male

DRUGS (3)
  1. FLUOROURACIL [Concomitant]
     Dosage: UNK
  2. TRACLEER [Suspect]
     Indication: SKIN ULCER
     Dosage: UNK
     Route: 048
     Dates: start: 20090901
  3. GEMCITABINE [Concomitant]

REACTIONS (4)
  - DRY GANGRENE [None]
  - CONDITION AGGRAVATED [None]
  - MULTI-ORGAN FAILURE [None]
  - SKIN ULCER [None]
